FAERS Safety Report 10070445 (Version 1)
Quarter: 2014Q2

REPORT INFORMATION
  Report Type: Spontaneous
  Country: KR (occurrence: KR)
  Receive Date: 20140410
  Receipt Date: 20140410
  Transmission Date: 20141212
  Serious: Yes (Death, Hospitalization, Other)
  Sender: FDA-Public Use
  Company Number: PHHY2014KR042346

PATIENT
  Age: 64 Year
  Sex: Female

DRUGS (6)
  1. CICLOSPORIN [Suspect]
     Indication: IMMUNOSUPPRESSION
  2. SIMVASTATIN [Suspect]
     Indication: DYSLIPIDAEMIA
     Dosage: 20 MG, PER DAY
  3. GEMCITABINE [Suspect]
     Indication: CHEMOTHERAPY
     Dosage: 1250 MG/M2, FOR EVERY 3 WEEKS
  4. CISPLATIN [Suspect]
     Indication: CHEMOTHERAPY
     Dosage: 75 MG/M2, FOR EVERY 3 WEEKS
  5. SIROLIMUS [Suspect]
     Indication: IMMUNOSUPPRESSION
     Dosage: 2 MG, PER DAY
  6. CORTICOSTEROIDS [Suspect]
     Indication: IMMUNOSUPPRESSION

REACTIONS (16)
  - Death [Fatal]
  - Chest discomfort [Unknown]
  - Dyspnoea exertional [Unknown]
  - Hypophagia [Unknown]
  - Myalgia [Recovering/Resolving]
  - Diarrhoea [Unknown]
  - Lung adenocarcinoma stage IV [Unknown]
  - Metastases to central nervous system [Unknown]
  - Metastases to bone [Unknown]
  - Rhabdomyolysis [Unknown]
  - Renal failure acute [Unknown]
  - Pulmonary oedema [Unknown]
  - Urine output decreased [Unknown]
  - Sepsis [Not Recovered/Not Resolved]
  - Urinary tract infection [Not Recovered/Not Resolved]
  - Escherichia infection [Unknown]
